FAERS Safety Report 21928194 (Version 2)
Quarter: 2023Q1

REPORT INFORMATION
  Report Type: Report from Study
  Country: FR (occurrence: FR)
  Receive Date: 20230130
  Receipt Date: 20230213
  Transmission Date: 20230418
  Serious: Yes (Other)
  Sender: FDA-Public Use
  Company Number: FR-GILEAD-2022-0587607

PATIENT
  Sex: Female
  Weight: 53 kg

DRUGS (18)
  1. SACITUZUMAB GOVITECAN-HZIY [Suspect]
     Active Substance: SACITUZUMAB GOVITECAN-HZIY
     Indication: Triple negative breast cancer
     Dosage: 10 MG/KG
     Route: 042
     Dates: start: 20220119, end: 20220126
  2. SACITUZUMAB GOVITECAN-HZIY [Suspect]
     Active Substance: SACITUZUMAB GOVITECAN-HZIY
     Dosage: 10 MG/KG
     Route: 042
     Dates: start: 20220209, end: 20220216
  3. SACITUZUMAB GOVITECAN-HZIY [Suspect]
     Active Substance: SACITUZUMAB GOVITECAN-HZIY
     Dosage: 10 MG/KG
     Route: 042
     Dates: start: 20220302, end: 20220309
  4. SACITUZUMAB GOVITECAN-HZIY [Suspect]
     Active Substance: SACITUZUMAB GOVITECAN-HZIY
     Dosage: 10 MG/KG
     Route: 042
     Dates: start: 20220323, end: 20220330
  5. SACITUZUMAB GOVITECAN-HZIY [Suspect]
     Active Substance: SACITUZUMAB GOVITECAN-HZIY
     Dosage: 10 MG/KG
     Route: 042
     Dates: start: 20220413, end: 20220420
  6. SACITUZUMAB GOVITECAN-HZIY [Suspect]
     Active Substance: SACITUZUMAB GOVITECAN-HZIY
     Dosage: 10 MG/KG
     Route: 042
     Dates: start: 20220504, end: 20220511
  7. SACITUZUMAB GOVITECAN-HZIY [Suspect]
     Active Substance: SACITUZUMAB GOVITECAN-HZIY
     Dosage: 10 MG/KG
     Route: 042
     Dates: start: 20220608, end: 20220615
  8. SACITUZUMAB GOVITECAN-HZIY [Suspect]
     Active Substance: SACITUZUMAB GOVITECAN-HZIY
     Dosage: 10 MG/KG, C8D1 AND D8
     Route: 042
     Dates: start: 20220629, end: 20220706
  9. SACITUZUMAB GOVITECAN-HZIY [Suspect]
     Active Substance: SACITUZUMAB GOVITECAN-HZIY
     Dosage: 10 MG/KG, C9D1 AND D8
     Route: 042
     Dates: start: 20220720, end: 20220727
  10. SACITUZUMAB GOVITECAN-HZIY [Suspect]
     Active Substance: SACITUZUMAB GOVITECAN-HZIY
     Dosage: 10 MG/KG, C10D1 AND D8
     Route: 042
     Dates: start: 20220810, end: 20220817
  11. SACITUZUMAB GOVITECAN-HZIY [Suspect]
     Active Substance: SACITUZUMAB GOVITECAN-HZIY
     Dosage: 10 MG/KG, C11D1 AND D8
     Route: 042
     Dates: start: 20220831, end: 20220907
  12. SACITUZUMAB GOVITECAN-HZIY [Suspect]
     Active Substance: SACITUZUMAB GOVITECAN-HZIY
     Dosage: 10 MG/KG, C12D1 AND D8
     Route: 042
     Dates: start: 20220921, end: 20220928
  13. SACITUZUMAB GOVITECAN-HZIY [Suspect]
     Active Substance: SACITUZUMAB GOVITECAN-HZIY
     Dosage: 10 MG/KG C13D1 AND D8
     Route: 042
     Dates: start: 20221012, end: 20221019
  14. SACITUZUMAB GOVITECAN-HZIY [Suspect]
     Active Substance: SACITUZUMAB GOVITECAN-HZIY
     Dosage: 10 MG/KG ON C14D1 AND C14D8
     Route: 042
     Dates: start: 20221103, end: 20221109
  15. SACITUZUMAB GOVITECAN-HZIY [Suspect]
     Active Substance: SACITUZUMAB GOVITECAN-HZIY
     Dosage: 10 MG/KG ON C15; D1 AND D8
     Route: 042
     Dates: start: 20221123, end: 20221130
  16. SACITUZUMAB GOVITECAN-HZIY [Suspect]
     Active Substance: SACITUZUMAB GOVITECAN-HZIY
     Dosage: 10 MG/KG ON C16; D1 AND D8
     Route: 042
     Dates: start: 20221214, end: 20221221
  17. SACITUZUMAB GOVITECAN-HZIY [Suspect]
     Active Substance: SACITUZUMAB GOVITECAN-HZIY
     Dosage: 10 MG/KG
     Route: 042
     Dates: start: 20230104, end: 20230111
  18. SACITUZUMAB GOVITECAN-HZIY [Suspect]
     Active Substance: SACITUZUMAB GOVITECAN-HZIY
     Dosage: 10 MG/KG, D1
     Route: 042
     Dates: start: 20230125

REACTIONS (15)
  - Disease progression [Unknown]
  - Haemorrhoids thrombosed [Unknown]
  - Herpes zoster [Recovered/Resolved]
  - Alopecia [Unknown]
  - Sciatica [Recovered/Resolved]
  - Gingivitis [Not Recovered/Not Resolved]
  - Lymphocele [Not Recovered/Not Resolved]
  - Weight decreased [Not Recovered/Not Resolved]
  - Off label use [Recovered/Resolved]
  - Inappropriate schedule of product administration [Unknown]
  - Mucosal inflammation [Not Recovered/Not Resolved]
  - Alopecia [Unknown]
  - Allodynia [Unknown]
  - Burning sensation [Unknown]
  - Neuralgia [Unknown]

NARRATIVE: CASE EVENT DATE: 20220706
